FAERS Safety Report 9107513 (Version 1)
Quarter: 2013Q1

REPORT INFORMATION
  Report Type: Spontaneous
  Country: US (occurrence: US)
  Receive Date: 20130221
  Receipt Date: 20130221
  Transmission Date: 20140127
  Serious: Yes (Other)
  Sender: FDA-Public Use
  Company Number: PHEH2013US004060

PATIENT
  Sex: Female

DRUGS (1)
  1. GLEEVEC [Suspect]
     Dosage: 400 MG, ONCE A DAY

REACTIONS (6)
  - Fall [Unknown]
  - Muscle disorder [Unknown]
  - Nausea [Unknown]
  - Eye oedema [Unknown]
  - Bone pain [Unknown]
  - Diarrhoea [Unknown]
